FAERS Safety Report 6306119-2 (Version None)
Quarter: 2009Q3

REPORT INFORMATION
  Report Type: 
  Country: None (occurrence: None)
  Receive Date: 20090812
  Receipt Date: 20090807
  Transmission Date: 20100115
  Serious: Yes (Other)
  Sender: FDA-Public Use
  Company Number: TR-ABBOTT-09P-161-0587701-00

PATIENT
  Age: 13 Year
  Sex: Male
  Weight: 51 kg

DRUGS (6)
  1. KLACID I.V. [Suspect]
     Indication: BRONCHOPNEUMONIA
     Route: 042
     Dates: start: 20090622, end: 20090622
  2. CEFTRIAXON [Concomitant]
     Indication: BRONCHOPNEUMONIA
     Dates: start: 20090622, end: 20090626
  3. MENTOPIN [Concomitant]
     Indication: BRONCHOPNEUMONIA
     Dosage: NEBUL
     Dates: start: 20090622, end: 20090626
  4. RANITAB [Concomitant]
     Indication: DRUG USE FOR UNKNOWN INDICATION
     Dosage: NEBUL
     Dates: start: 20090622, end: 20090626
  5. ISOLYE [Concomitant]
     Indication: DRUG USE FOR UNKNOWN INDICATION
     Dosage: NEBUL
     Dates: start: 20090622, end: 20090626
  6. BRICANYL [Concomitant]
     Indication: BRONCHOPNEUMONIA
     Route: 042
     Dates: start: 20090622

REACTIONS (3)
  - INJECTION SITE ERYTHEMA [None]
  - PAIN IN EXTREMITY [None]
  - VASCULITIS [None]
